FAERS Safety Report 8985714 (Version 1)
Quarter: 2012Q4

REPORT INFORMATION
  Report Type: 
  Country: US (occurrence: US)
  Receive Date: 20121226
  Receipt Date: 20121226
  Transmission Date: 20130627
  Serious: No
  Sender: FDA-Public Use
  Company Number: US-VERTEX PHARMACEUTICALS INC.-2012-026507

PATIENT
  Sex: Male
  Weight: 82 kg

DRUGS (8)
  1. VX-950 (TELAPREVIR) [Suspect]
     Indication: HEPATITIS C
     Dosage: 750 mg, tid
     Route: 048
     Dates: start: 20121214
  2. PEGASYS [Suspect]
     Indication: HEPATITIS C
     Dosage: 180 ?g, qw
     Route: 058
     Dates: start: 20121214
  3. RIBASPHERE [Suspect]
     Indication: HEPATITIS C
     Dosage: 600 mg, bid
     Route: 048
     Dates: start: 20121214
  4. SYNTHROID [Concomitant]
     Dosage: 50 ?g, qd
     Route: 048
  5. OMEPRAZOLE [Concomitant]
     Dosage: 20 mg, qd
     Route: 048
  6. LISINOPRIL + HIDROCLOROTIAZIDA [Concomitant]
     Dosage: 1 DF, qd
     Route: 048
  7. FEXOFENADINE HCL [Concomitant]
     Dosage: 1 DF, qd
     Route: 048
  8. VITAMIN D3 [Concomitant]
     Dosage: 2000 ut, qd

REACTIONS (3)
  - Arthritis [Unknown]
  - Erythema [Unknown]
  - Rash generalised [Unknown]
